FAERS Safety Report 17998901 (Version 1)
Quarter: 2020Q3

REPORT INFORMATION
  Report Type: Spontaneous
  Country: US (occurrence: US)
  Receive Date: 20200708
  Receipt Date: 20200708
  Transmission Date: 20201103
  Serious: No
  Sender: FDA-Public Use
  Company Number: None

PATIENT

DRUGS (1)
  1. QUETIAPINE. [Suspect]
     Active Substance: QUETIAPINE
     Indication: ANXIETY
     Route: 048
     Dates: start: 20190515, end: 20190606

REACTIONS (6)
  - Agitation [None]
  - Nervousness [None]
  - Feeling jittery [None]
  - Tremor [None]
  - Akathisia [None]
  - Restless legs syndrome [None]

NARRATIVE: CASE EVENT DATE: 20190530
